FAERS Safety Report 25268647 (Version 2)
Quarter: 2025Q2

REPORT INFORMATION
  Report Type: Report from Study
  Country: IN (occurrence: IN)
  Receive Date: 20250505
  Receipt Date: 20250623
  Transmission Date: 20250717
  Serious: Yes (Other)
  Sender: NOVARTIS
  Company Number: IN-002147023-NVSC2025IN052671

PATIENT
  Sex: Male

DRUGS (3)
  1. MYFORTIC [Suspect]
     Active Substance: MYCOPHENOLATE SODIUM
     Indication: Prophylaxis against transplant rejection
     Dosage: 360 MG, TID
     Route: 048
  2. MYFORTIC [Suspect]
     Active Substance: MYCOPHENOLATE SODIUM
     Route: 048
  3. TACROLIMUS [Suspect]
     Active Substance: TACROLIMUS
     Indication: Prophylaxis against transplant rejection
     Route: 048

REACTIONS (13)
  - Hydronephrosis [Unknown]
  - New onset diabetes after transplantation [Unknown]
  - Blood potassium abnormal [Unknown]
  - Product prescribing error [Unknown]
  - Blood chloride abnormal [Unknown]
  - Blood sodium abnormal [Unknown]
  - Haemoglobin abnormal [Unknown]
  - Blood phosphorus abnormal [Unknown]
  - Low density lipoprotein abnormal [Unknown]
  - Blood albumin abnormal [Unknown]
  - Blood calcium abnormal [Unknown]
  - Glycosylated haemoglobin abnormal [Unknown]
  - Immunosuppressant drug level abnormal [Unknown]
